FAERS Safety Report 4934195-8 (Version None)
Quarter: 2006Q1

REPORT INFORMATION
  Report Type: 
  Country: None (occurrence: None)
  Receive Date: 20060303
  Receipt Date: 20060301
  Transmission Date: 20060701
  Serious: Yes (Life-Threatening, Hospitalization, Disabling, Other)
  Sender: FDA-Public Use
  Company Number: 200419361BWH

PATIENT
  Age: 83 Year
  Sex: Female

DRUGS (1)
  1. AVELOX [Suspect]
     Indication: PNEUMONIA
     Dosage: 400 MG, ONCE, INTRAVENOUS
     Route: 042
     Dates: start: 20040301

REACTIONS (3)
  - ANOXIC ENCEPHALOPATHY [None]
  - CARDIAC ARREST [None]
  - TORSADE DE POINTES [None]
